FAERS Safety Report 4860741-9 (Version None)
Quarter: 2005Q4

REPORT INFORMATION
  Report Type: 
  Country: None (occurrence: None)
  Receive Date: 20051220
  Receipt Date: 20030319
  Transmission Date: 20060501
  Serious: Yes (Hospitalization, Disabling, Congenital Anomaly, Other)
  Sender: FDA-Public Use
  Company Number: US-ABBOTT-03P-163-0214155-00

PATIENT
  Sex: Male

DRUGS (2)
  1. DEPAKOTE [Suspect]
     Indication: DRUG EXPOSURE DURING PREGNANCY
  2. LEVETIRACETAM [Suspect]
     Indication: DRUG EXPOSURE DURING PREGNANCY

REACTIONS (61)
  - ABDOMINAL PAIN [None]
  - ACOUSTIC STIMULATION TESTS ABNORMAL [None]
  - APNOEA [None]
  - ASPIRATION [None]
  - ASTHENIA [None]
  - ATRIAL SEPTAL DEFECT [None]
  - BRONCHITIS [None]
  - CEREBRAL DYSGENESIS [None]
  - COGNITIVE DISORDER [None]
  - CONGENITAL ANOMALY [None]
  - CONGENITAL EYE DISORDER [None]
  - CONGENITAL HEARING DISORDER [None]
  - CONGENITAL MUSCULOSKELETAL ANOMALY [None]
  - CONGENITAL NOSE MALFORMATION [None]
  - CONVULSION [None]
  - COUGH [None]
  - CRYPTORCHISM [None]
  - CYANOSIS [None]
  - DACRYOSTENOSIS ACQUIRED [None]
  - DEVELOPMENTAL DELAY [None]
  - DIARRHOEA [None]
  - DIFFICULTY IN WALKING [None]
  - DILATATION VENTRICULAR [None]
  - DRUG EXPOSURE DURING PREGNANCY [None]
  - DYSPHAGIA [None]
  - EAR INFECTION [None]
  - EPILEPSY [None]
  - EXPRESSIVE LANGUAGE DISORDER [None]
  - EXTREMITY CONTRACTURE [None]
  - FACIAL DYSMORPHISM [None]
  - FEEDING DISORDER [None]
  - FEEDING DISORDER NEONATAL [None]
  - FOETAL VALPROATE SYNDROME [None]
  - GASTROENTERITIS [None]
  - GASTROOESOPHAGEAL REFLUX DISEASE [None]
  - GROWTH RETARDATION [None]
  - HERNIA CONGENITAL [None]
  - HYPERTONIA [None]
  - HYPOGLYCAEMIA [None]
  - HYPOKINESIA [None]
  - JOINT CONTRACTURE [None]
  - JOINT INSTABILITY [None]
  - JOINT RANGE OF MOTION DECREASED [None]
  - LARYNGOTRACHEO BRONCHITIS [None]
  - LOW SET EARS [None]
  - MICROCEPHALY [None]
  - MOVEMENT DISORDER [None]
  - MULTIPLE CONGENITAL ABNORMALITIES [None]
  - PAIN [None]
  - PERIANAL ERYTHEMA [None]
  - RASH [None]
  - REFLUX OESOPHAGITIS [None]
  - RESPIRATORY DISORDER [None]
  - RETCHING [None]
  - SPEECH DISORDER DEVELOPMENTAL [None]
  - TESTICULAR SWELLING [None]
  - TRACHEOMALACIA [None]
  - TRISMUS [None]
  - UNEVALUABLE EVENT [None]
  - UPPER RESPIRATORY TRACT INFECTION [None]
  - WEIGHT DECREASED [None]
